FAERS Safety Report 8537367-9 (Version None)
Quarter: 2012Q3

REPORT INFORMATION
  Report Type: 
  Country: None (occurrence: None)
  Receive Date: 20120725
  Receipt Date: 20120716
  Transmission Date: 20120928
  Serious: Yes (Hospitalization)
  Sender: FDA-Public Use
  Company Number: CA-JNJFOC-20120204164

PATIENT
  Age: 54 Year
  Sex: Female

DRUGS (3)
  1. INVEGA SUSTENNA [Suspect]
     Indication: SCHIZOPHRENIA
     Route: 065
  2. INVEGA SUSTENNA [Suspect]
     Route: 065
     Dates: start: 20111212
  3. INVEGA SUSTENNA [Suspect]
     Route: 065

REACTIONS (1)
  - SCHIZOPHRENIA [None]
